FAERS Safety Report 8507160-1 (Version None)
Quarter: 2012Q3

REPORT INFORMATION
  Report Type: 
  Country: None (occurrence: None)
  Receive Date: 20120712
  Receipt Date: 20120703
  Transmission Date: 20120928
  Serious: Yes (Hospitalization)
  Sender: FDA-Public Use
  Company Number: US-B.I. PHARMACEUTICALS,INC./RIDGEFIELD-2012-BP-14945BP

PATIENT
  Sex: Female

DRUGS (2)
  1. PRADAXA [Suspect]
     Route: 048
  2. PRADAXA [Suspect]
     Dosage: 150 MG
     Route: 048

REACTIONS (2)
  - RENAL FAILURE ACUTE [None]
  - GASTROINTESTINAL HAEMORRHAGE [None]
